FAERS Safety Report 7196648-4 (Version None)
Quarter: 2010Q4

REPORT INFORMATION
  Report Type: 
  Country: None (occurrence: None)
  Receive Date: 20101223
  Receipt Date: 20101028
  Transmission Date: 20110411
  Serious: No
  Sender: FDA-Public Use
  Company Number: US-AMGEN-USASP2010002243

PATIENT

DRUGS (1)
  1. ENBREL [Suspect]
     Indication: RHEUMATOID ARTHRITIS
     Dates: start: 20100630

REACTIONS (4)
  - BODY TEMPERATURE INCREASED [None]
  - LABYRINTHITIS [None]
  - NECK PAIN [None]
  - PAIN IN JAW [None]
